FAERS Safety Report 13842899 (Version 2)
Quarter: 2017Q3

REPORT INFORMATION
  Report Type: Spontaneous
  Country: AZ (occurrence: AZ)
  Receive Date: 20170808
  Receipt Date: 20170822
  Transmission Date: 20171127
  Serious: Yes (Congenital Anomaly)
  Sender: FDA-Public Use
  Company Number: AZ-NOVOPROD-556940

PATIENT

DRUGS (2)
  1. LEVEMIR [Suspect]
     Active Substance: INSULIN DETEMIR
     Indication: TYPE 1 DIABETES MELLITUS
     Dosage: 18 U, QD
     Route: 064
     Dates: end: 20170808
  2. HUMALOG [Concomitant]
     Active Substance: INSULIN LISPRO
     Indication: TYPE 1 DIABETES MELLITUS
     Dosage: 30 U, QD
     Route: 064

REACTIONS (2)
  - Foetal exposure during pregnancy [Recovered/Resolved]
  - Foetal cystic hygroma [Unknown]

NARRATIVE: CASE EVENT DATE: 20170728
